FAERS Safety Report 15120332 (Version 1)
Quarter: 2018Q3

REPORT INFORMATION
  Report Type: Spontaneous
  Country: GB (occurrence: GB)
  Receive Date: 20180709
  Receipt Date: 20180709
  Transmission Date: 20181010
  Serious: Yes (Hospitalization, Disabling, Other)
  Sender: FDA-Public Use
  Company Number: GB-BAYER-2018-125320

PATIENT
  Sex: Female

DRUGS (2)
  1. CIPROFLOXACIN MONOHYDROCHLORIDE [Suspect]
     Active Substance: CIPROFLOXACIN
     Indication: CYSTITIS
     Dosage: 500 MG, ONCE
     Route: 048
     Dates: start: 201511
  2. CIPROFLOXACIN BETAIN [Suspect]
     Active Substance: CIPROFLOXACIN
     Indication: PNEUMONIA
     Dosage: UNK
     Dates: start: 201511

REACTIONS (8)
  - Balance disorder [None]
  - Fall [None]
  - Neuropathy peripheral [None]
  - Muscular weakness [None]
  - Pain [None]
  - Vision blurred [Recovered/Resolved]
  - Tooth loss [None]
  - Tinnitus [Recovered/Resolved]

NARRATIVE: CASE EVENT DATE: 201511
